FAERS Safety Report 4550834-8 (Version None)
Quarter: 2005Q1

REPORT INFORMATION
  Report Type: 
  Country: None (occurrence: None)
  Receive Date: 20050112
  Receipt Date: 20041230
  Transmission Date: 20050727
  Serious: Yes (Death)
  Sender: FDA-Public Use
  Company Number: MY-MERCK-0412MYS00005

PATIENT
  Age: 20 Year
  Sex: Female

DRUGS (2)
  1. CANCIDAS [Suspect]
     Indication: SYSTEMIC CANDIDA
     Route: 042
     Dates: start: 20041224, end: 20041225
  2. AMPHOTERICIN B [Concomitant]
     Route: 065
     Dates: start: 20041201, end: 20041201

REACTIONS (1)
  - SEPSIS [None]
